FAERS Safety Report 5735956-8 (Version None)
Quarter: 2008Q2

REPORT INFORMATION
  Report Type: 
  Country: None (occurrence: None)
  Receive Date: 20080509
  Receipt Date: 20080422
  Transmission Date: 20081010
  Serious: Yes (Life-Threatening)
  Sender: FDA-Public Use
  Company Number: 1-16052832

PATIENT
  Sex: Female
  Weight: 170 kg

DRUGS (20)
  1. FENTANYL [Suspect]
     Indication: EHLERS-DANLOS SYNDROME
     Dosage: 50MCG/HR EVERY 48 HRS, TRANSDERMAL
     Route: 062
     Dates: start: 20070601
  2. CYMBALTA [Concomitant]
  3. WELLBUTRIN [Concomitant]
  4. PROVIGIL [Concomitant]
  5. FLEXERIL [Concomitant]
  6. VICODIN (HYDROCODONE AND ACETAMINOPHEN) [Concomitant]
  7. MOBIC [Concomitant]
  8. ZANAFLEX [Concomitant]
  9. NEXIUM [Concomitant]
  10. AMITIZA [Concomitant]
  11. MIRALAX [Concomitant]
  12. LEVSIN (HYOSCYAMINE) [Concomitant]
  13. MAXALT [Concomitant]
  14. LUTERA (LEVONORGESTREL AND ETHINYL ESTRADIOL) [Concomitant]
  15. FLONASE [Concomitant]
  16. ZYRTEC [Concomitant]
  17. ADVAIR (FLUTICASONE PROPIONATE AND SALMETEROL) [Concomitant]
  18. AMBIEN [Concomitant]
  19. PHENERGAN [Concomitant]
  20. LIDOCAINE PATCH 5% AS NEEDED [Concomitant]

REACTIONS (18)
  - ABNORMAL BEHAVIOUR [None]
  - AMNESIA [None]
  - ASTHENIA [None]
  - BACK PAIN [None]
  - CONTUSION [None]
  - CONVULSION [None]
  - FALL [None]
  - FEELING ABNORMAL [None]
  - JOINT DISLOCATION [None]
  - LOSS OF CONSCIOUSNESS [None]
  - MEMORY IMPAIRMENT [None]
  - MIGRAINE [None]
  - NECK PAIN [None]
  - ROAD TRAFFIC ACCIDENT [None]
  - SEDATION [None]
  - SKIN LACERATION [None]
  - SPINAL DISORDER [None]
  - STARING [None]
